FAERS Safety Report 12501211 (Version 4)
Quarter: 2018Q4

REPORT INFORMATION
  Report Type: Report from Study
  Country: MX (occurrence: MX)
  Receive Date: 20160627
  Receipt Date: 20181210
  Transmission Date: 20190204
  Serious: Yes (Other)
  Sender: FDA-Public Use
  Company Number: PHHY2016MX071393

PATIENT
  Sex: Male
  Weight: 72 kg

DRUGS (3)
  1. NORVASC [Concomitant]
     Active Substance: AMLODIPINE BESYLATE
     Indication: BLOOD PRESSURE ABNORMAL
     Dosage: 5 MG, QD (LAST WEEK)
     Route: 065
  2. VALSARTAN. [Suspect]
     Active Substance: VALSARTAN
     Indication: HYPERTENSION
     Route: 065
  3. DIOVAN [Suspect]
     Active Substance: VALSARTAN
     Indication: HYPERTENSION
     Dosage: 2 DF, QD
     Route: 048

REACTIONS (4)
  - Blood pressure fluctuation [Unknown]
  - Inappropriate schedule of product administration [Recovered/Resolved]
  - Blood pressure increased [Unknown]
  - Cardiac dysfunction [Not Recovered/Not Resolved]
